FAERS Safety Report 19194229 (Version 1)
Quarter: 2021Q2

REPORT INFORMATION
  Report Type: Spontaneous
  Country: US (occurrence: US)
  Receive Date: 20210429
  Receipt Date: 20210429
  Transmission Date: 20210717
  Serious: Yes (Hospitalization)
  Sender: FDA-Public Use
  Company Number: None

PATIENT
  Age: 80 Year
  Sex: Male
  Weight: 71.21 kg

DRUGS (1)
  1. EMPAGLIFLOZIN (EMPAGLIFLOZIN 10MG TAB) [Suspect]
     Active Substance: EMPAGLIFLOZIN
     Route: 048
     Dates: start: 20201113, end: 20201206

REACTIONS (8)
  - SARS-CoV-2 test positive [None]
  - Pyrexia [None]
  - Bandaemia [None]
  - Pneumonia aspiration [None]
  - Glycosylated haemoglobin increased [None]
  - Diabetic ketoacidosis [None]
  - Lung opacity [None]
  - Hypoxia [None]

NARRATIVE: CASE EVENT DATE: 20201206
